FAERS Safety Report 9037796 (Version 1)
Quarter: 2013Q1

REPORT INFORMATION
  Report Type: Spontaneous
  Country: US (occurrence: US)
  Receive Date: 20130129
  Receipt Date: 20130129
  Transmission Date: 20140127
  Serious: No
  Sender: FDA-Public Use
  Company Number: US-009507513-1301USA012367

PATIENT
  Age: 62 Year
  Sex: Male

DRUGS (4)
  1. JANUVIA [Suspect]
     Indication: TYPE 2 DIABETES MELLITUS
     Dosage: 100 MG, QD
     Dates: start: 20130125
  2. LOVASTATIN [Concomitant]
  3. LISINOPRIL [Concomitant]
  4. AMARYL [Concomitant]

REACTIONS (1)
  - Pruritus [Unknown]
